FAERS Safety Report 5149358-9 (Version None)
Quarter: 2006Q4

REPORT INFORMATION
  Report Type: 
  Country: None (occurrence: None)
  Receive Date: 20061113
  Receipt Date: 20051117
  Transmission Date: 20070319
  Serious: No
  Sender: FDA-Public Use
  Company Number: 425550

PATIENT
  Age: 81 Year
  Sex: Female
  Weight: 93.2 kg

DRUGS (7)
  1. COREG [Suspect]
     Dosage: 3.125MG TWICE PER DAY
     Route: 048
     Dates: start: 20051014, end: 20051117
  2. TRAZODONE HCL [Concomitant]
     Dosage: 50MG PER DAY
  3. LEVOTHYROXINE SODIUM [Concomitant]
     Dosage: 40MG PER DAY
  4. LOVASTATIN [Concomitant]
     Dosage: 40MG PER DAY
  5. FUROSEMIDE [Concomitant]
     Dosage: 30MG PER DAY
  6. ISOSORBIDE MONONITRATE [Concomitant]
     Dosage: 325MG PER DAY
  7. ASPIRIN [Concomitant]

REACTIONS (1)
  - FATIGUE [None]
